FAERS Safety Report 4307339-9 (Version None)
Quarter: 2004Q1

REPORT INFORMATION
  Report Type: 
  Country: None (occurrence: None)
  Receive Date: 20040226
  Receipt Date: 20040218
  Transmission Date: 20041129
  Serious: Yes (Disabling)
  Sender: FDA-Public Use
  Company Number: CIP04000252

PATIENT
  Age: 77 Year
  Sex: Female
  Weight: 72.6 kg

DRUGS (5)
  1. ACTONEL [Suspect]
     Indication: OSTEOPOROSIS
     Dosage: 35 MG ONCE WEEKLY, ORAL
     Route: 048
     Dates: start: 20030501, end: 20040201
  2. AVAPRO [Concomitant]
  3. SULAR [Concomitant]
  4. CORDARONE [Concomitant]
  5. LABETALOL HCL [Concomitant]

REACTIONS (2)
  - GASTROINTESTINAL HAEMORRHAGE [None]
  - MELAENA [None]
